FAERS Safety Report 5763713-5 (Version None)
Quarter: 2008Q2

REPORT INFORMATION
  Report Type: 
  Country: None (occurrence: None)
  Receive Date: 20080610
  Receipt Date: 20080530
  Transmission Date: 20081010
  Serious: Yes (Other)
  Sender: FDA-Public Use
  Company Number: FR-AMGEN-US285043

PATIENT
  Sex: Female

DRUGS (10)
  1. ENBREL [Suspect]
     Indication: PSORIASIS
     Route: 058
     Dates: start: 20070101, end: 20070901
  2. ENBREL [Suspect]
     Indication: PSORIATIC ARTHROPATHY
     Dosage: UNKNOWN
     Route: 058
     Dates: start: 20080201, end: 20080501
  3. NOCTAMID [Suspect]
     Dosage: OVERDOSE AMOUNT: UNKNOWN
     Route: 048
     Dates: start: 20080501, end: 20080501
  4. SEROPRAM [Suspect]
     Indication: DEPRESSION
     Dosage: UNKNOWN
     Route: 048
     Dates: start: 20070901, end: 20080301
  5. SEROPRAM [Suspect]
     Dosage: UNKNOWN; INCREASED DOSAGE
     Route: 048
     Dates: start: 20080301, end: 20080501
  6. SEROPRAM [Suspect]
     Dosage: OVERDOSE AMOUNT: UNKNOWN
     Route: 048
     Dates: start: 20080501, end: 20080501
  7. XANAX [Suspect]
     Dosage: OVERDOSE AMOUNT: UNKNOWN
     Route: 048
     Dates: start: 20080501, end: 20080501
  8. TAREG [Concomitant]
     Indication: HYPERTENSION
     Dosage: UNKNOWN
     Route: 048
  9. DI-ANTALVIC [Concomitant]
     Dosage: UNKNOWN
     Route: 048
  10. BI-PROFENID [Concomitant]
     Dosage: UNKNOWN
     Route: 048

REACTIONS (5)
  - DEPRESSION [None]
  - INTENTIONAL OVERDOSE [None]
  - MOOD ALTERED [None]
  - SEDATION [None]
  - SUICIDE ATTEMPT [None]
